FAERS Safety Report 4655431-1 (Version None)
Quarter: 2005Q2

REPORT INFORMATION
  Report Type: 
  Country: None (occurrence: None)
  Receive Date: 20050505
  Receipt Date: 20050426
  Transmission Date: 20051028
  Serious: Yes (Hospitalization)
  Sender: FDA-Public Use
  Company Number: US015151

PATIENT
  Sex: Female

DRUGS (3)
  1. GABITRIL [Suspect]
     Indication: NEURALGIA
     Dosage: 4 MG BID ORAL
     Route: 048
     Dates: end: 20050426
  2. GABITRIL [Suspect]
     Indication: NEUROPATHY PERIPHERAL
     Dosage: 4 MG BID ORAL
     Route: 048
     Dates: end: 20050426
  3. NEURONTIN [Suspect]
     Dosage: 300 MG, ORAL
     Route: 048
     Dates: start: 20050302

REACTIONS (4)
  - DEPRESSED LEVEL OF CONSCIOUSNESS [None]
  - DRUG INTERACTION [None]
  - DYSKINESIA [None]
  - TREMOR [None]
